FAERS Safety Report 9140861 (Version 1)
Quarter: 2013Q1

REPORT INFORMATION
  Report Type: Report from Study
  Country: US (occurrence: US)
  Receive Date: 20130305
  Receipt Date: 20130305
  Transmission Date: 20140127
  Serious: Yes (Hospitalization)
  Sender: FDA-Public Use
  Company Number: US-ACTELION-A-US2013-79816

PATIENT
  Age: 66 Year
  Sex: Female

DRUGS (16)
  1. TRACLEER [Suspect]
     Indication: PULMONARY ARTERIAL HYPERTENSION
     Dosage: 125 MG, BID
     Route: 048
  2. TRACLEER [Suspect]
     Dosage: 62.5 MG, UNK
     Route: 048
     Dates: start: 20100226
  3. OMEPRAZOLE [Concomitant]
     Dosage: 20 MG, BID
  4. LOSARTAN [Concomitant]
     Dosage: 50 MG, BID
  5. ALPRAZOLAM [Concomitant]
     Dosage: 1 MG, OD
  6. INSULIN [Concomitant]
     Dosage: 48 U, QAM
  7. INSULIN N [Concomitant]
     Dosage: 38 U, QPM
  8. INSULIN REGULAR [Concomitant]
     Dosage: 20 U, BID
  9. AMLODIPINE [Concomitant]
     Dosage: DQD
  10. DIGOXIN [Concomitant]
     Dosage: 0.125 MG, QD
  11. LEVOTHYROXIN [Concomitant]
     Dosage: 137 MCG, QD
  12. WARFARIN [Concomitant]
     Dosage: 5 MG, QD
  13. LOVASTATIN [Concomitant]
     Dosage: 40 MG, QD
  14. ASPIRIN [Concomitant]
     Dosage: 81 MG, QD
  15. FUROSEMIDE [Concomitant]
     Dosage: 20 MG, QD
  16. OXYGEN [Concomitant]

REACTIONS (8)
  - Gallbladder disorder [Recovered/Resolved]
  - Dysgeusia [Recovered/Resolved]
  - Pain [Recovered/Resolved]
  - Feeling hot [Recovered/Resolved]
  - Paraesthesia [Recovered/Resolved]
  - Loss of consciousness [Recovered/Resolved]
  - Anaemia [Not Recovered/Not Resolved]
  - Memory impairment [Not Recovered/Not Resolved]
